FAERS Safety Report 11089852 (Version 1)
Quarter: 2015Q2

REPORT INFORMATION
  Report Type: Spontaneous
  Country: CO (occurrence: CO)
  Receive Date: 20150505
  Receipt Date: 20150505
  Transmission Date: 20150821
  Serious: Yes (Other)
  Sender: FDA-Public Use
  Company Number: CO-JNJFOC-20150420752

PATIENT
  Age: 42 Year
  Sex: Male

DRUGS (1)
  1. RISPERDAL CONSTA [Suspect]
     Active Substance: RISPERIDONE
     Indication: SCHIZOPHRENIA
     Route: 030
     Dates: start: 20150201

REACTIONS (2)
  - Tachycardia [Not Recovered/Not Resolved]
  - Asphyxia [Not Recovered/Not Resolved]

NARRATIVE: CASE EVENT DATE: 20150323
